FAERS Safety Report 17948397 (Version 1)
Quarter: 2020Q2

REPORT INFORMATION
  Report Type: Spontaneous
  Country: CA (occurrence: CA)
  Receive Date: 20200626
  Receipt Date: 20200626
  Transmission Date: 20200714
  Serious: Yes (Other)
  Sender: FDA-Public Use
  Company Number: CA-PFIZER INC-2020246061

PATIENT
  Age: 13 Year
  Sex: Female

DRUGS (11)
  1. METHOTREXATE SODIUM. [Suspect]
     Active Substance: METHOTREXATE SODIUM
     Dosage: UNK
  2. CAFFEINE. [Concomitant]
     Active Substance: CAFFEINE
     Dosage: UNK
  3. NABILONE [Concomitant]
     Active Substance: NABILONE
     Dosage: UNK
  4. NACL [Concomitant]
     Active Substance: SODIUM CHLORIDE
     Dosage: UNK
  5. SODIUM BICARBONATE. [Concomitant]
     Active Substance: SODIUM BICARBONATE
     Dosage: UNK
  6. SULFAMETHOXAZOLE AND TRIMETHOPRIM [Concomitant]
     Active Substance: SULFAMETHOXAZOLE\TRIMETHOPRIM
     Dosage: UNK
  7. MERCAPTOPURINE. [Concomitant]
     Active Substance: MERCAPTOPURINE
  8. ONDANSETRON [Concomitant]
     Active Substance: ONDANSETRON
     Dosage: UNK
  9. POLYETHYLENE GLYCOL [Concomitant]
     Active Substance: POLYETHYLENE GLYCOLS
     Dosage: UNK
  10. PEGASPARGASE [Concomitant]
     Active Substance: PEGASPARGASE
     Dosage: UNK
  11. DEXTROMETHORPHAN HYDROBROMIDE. [Concomitant]
     Active Substance: DEXTROMETHORPHAN HYDROBROMIDE
     Dosage: UNK

REACTIONS (1)
  - Neurotoxicity [Unknown]
